FAERS Safety Report 8156353-4 (Version None)
Quarter: 2012Q1

REPORT INFORMATION
  Report Type: 
  Country: None (occurrence: None)
  Receive Date: 20120222
  Receipt Date: 20120216
  Transmission Date: 20120608
  Serious: Yes (Hospitalization)
  Sender: FDA-Public Use
  Company Number: TH-PFIZER INC-2012042502

PATIENT

DRUGS (2)
  1. REVATIO [Suspect]
     Indication: PULMONARY ARTERIAL HYPERTENSION
     Dosage: 20 MG, 3X/DAY
     Route: 048
     Dates: start: 20120202, end: 20120201
  2. VITAMIN B COMPLEX CAP [Concomitant]
     Dosage: UNK

REACTIONS (3)
  - DYSPNOEA [None]
  - STEVENS-JOHNSON SYNDROME [None]
  - RASH [None]
